FAERS Safety Report 8257593-6 (Version None)
Quarter: 2012Q2

REPORT INFORMATION
  Report Type: 
  Country: None (occurrence: None)
  Receive Date: 20120403
  Receipt Date: 20120327
  Transmission Date: 20120825
  Serious: Yes (Other)
  Sender: FDA-Public Use
  Company Number: FR-GILEAD-2012-0053089

PATIENT
  Sex: Female

DRUGS (4)
  1. EMTRICITABINE AND TENOFOVIR DISOPROXIL FUMARATE [Suspect]
     Indication: HEPATITIS B
     Dosage: 1 DF, QD
     Route: 064
     Dates: start: 20090324
  2. PREZISTA [Concomitant]
     Dosage: UNK
     Route: 064
     Dates: start: 20110322
  3. REYATAZ [Concomitant]
     Dosage: UNK
     Route: 064
     Dates: start: 20091026, end: 20110322
  4. NORVIR [Concomitant]
     Dosage: UNK
     Route: 064
     Dates: start: 20090324

REACTIONS (1)
  - CONGENITAL GENITAL MALFORMATION [None]
